FAERS Safety Report 21918975 (Version 1)
Quarter: 2023Q1

REPORT INFORMATION
  Report Type: Spontaneous
  Country: FR (occurrence: FR)
  Receive Date: 20230127
  Receipt Date: 20230127
  Transmission Date: 20230417
  Serious: Yes (Other)
  Sender: FDA-Public Use
  Company Number: FR-AFSSAPS-LL20223632

PATIENT
  Age: 59 Year
  Sex: Female

DRUGS (3)
  1. FLUOXETINE [Suspect]
     Active Substance: FLUOXETINE HYDROCHLORIDE
     Indication: Depression
     Dosage: 20 MILLIGRAM
     Route: 048
     Dates: start: 20200116
  2. LYRICA [Suspect]
     Active Substance: PREGABALIN
     Indication: Seizure
     Dosage: 225 MILLIGRAM, DAILY
     Route: 048
     Dates: start: 20190321
  3. VIMPAT [Suspect]
     Active Substance: LACOSAMIDE
     Indication: Seizure
     Dosage: 100 MILLIGRAM, BID
     Route: 048
     Dates: start: 2020

REACTIONS (1)
  - Hallucination, visual [Not Recovered/Not Resolved]

NARRATIVE: CASE EVENT DATE: 20210101
